FAERS Safety Report 16192570 (Version 1)
Quarter: 2019Q2

REPORT INFORMATION
  Report Type: Spontaneous
  Country: US (occurrence: US)
  Receive Date: 20190412
  Receipt Date: 20190412
  Transmission Date: 20190711
  Serious: No
  Sender: FDA-Public Use
  Company Number: US-SA-2019SA101036

PATIENT
  Age: 52 Year
  Sex: Female

DRUGS (26)
  1. VITAMIN D3 [Concomitant]
     Active Substance: CHOLECALCIFEROL
  2. LISINOPRIL. [Concomitant]
     Active Substance: LISINOPRIL
  3. NYSTATIN AND TRIAMCINOLONE [Concomitant]
     Active Substance: NYSTATIN\TRIAMCINOLONE ACETONIDE
  4. PHENTERMINE HCL [Concomitant]
     Active Substance: PHENTERMINE HYDROCHLORIDE
  5. PANTOPRAZOLE SODIUM. [Concomitant]
     Active Substance: PANTOPRAZOLE SODIUM
  6. LANTUS [Concomitant]
     Active Substance: INSULIN GLARGINE
  7. VITAMIN B12 [Concomitant]
     Active Substance: CYANOCOBALAMIN
  8. URSODIOL. [Concomitant]
     Active Substance: URSODIOL
  9. OCUVITE [ASCORBIC ACID;RETINOL;TOCOPHEROL] [Concomitant]
  10. NITROSTAT [Concomitant]
     Active Substance: NITROGLYCERIN
  11. ORPHENADRINE CITRATE. [Concomitant]
     Active Substance: ORPHENADRINE CITRATE
  12. BIOTIN [Concomitant]
     Active Substance: BIOTIN
  13. ZYRTEC [Concomitant]
     Active Substance: CETIRIZINE HYDROCHLORIDE
  14. VITAMIN C [Concomitant]
     Active Substance: ASCORBIC ACID
  15. SINGULAIR [Concomitant]
     Active Substance: MONTELUKAST SODIUM
  16. CYCLOBENZAPRINE HCL [Concomitant]
     Active Substance: CYCLOBENZAPRINE HYDROCHLORIDE
  17. NOVOLOG [Concomitant]
     Active Substance: INSULIN ASPART
  18. SYNTHROID [Concomitant]
     Active Substance: LEVOTHYROXINE SODIUM
  19. EPINEPHRINE. [Concomitant]
     Active Substance: EPINEPHRINE
  20. VITAMIN B COMPLEX [Concomitant]
     Active Substance: CYANOCOBALAMIN\DEXPANTHENOL\NIACINAMIDE\PYRIDOXINE HYDROCHLORIDE\RIBOFLAVIN 5^-PHOSPHATE SODIUM\THIAMINE HYDROCHLORIDE\VITAMIN B COMPLEX
  21. ATENOLOL. [Concomitant]
     Active Substance: ATENOLOL
  22. DUPIXENT [Suspect]
     Active Substance: DUPILUMAB
     Indication: DERMATITIS ATOPIC
     Dosage: 300 MG, QOW
     Route: 058
     Dates: start: 20190111
  23. VICTOZA [Concomitant]
     Active Substance: LIRAGLUTIDE
  24. NPLATE [Concomitant]
     Active Substance: ROMIPLOSTIM
  25. VITAMIN E [Concomitant]
     Active Substance: .ALPHA.-TOCOPHEROL
  26. VENLAFAXINE HCL [Concomitant]
     Active Substance: VENLAFAXINE HYDROCHLORIDE

REACTIONS (5)
  - Sinusitis [Not Recovered/Not Resolved]
  - Oropharyngeal pain [Unknown]
  - Eczema infected [Not Recovered/Not Resolved]
  - Retching [Unknown]
  - Nasopharyngitis [Unknown]

NARRATIVE: CASE EVENT DATE: 201902
